FAERS Safety Report 8417453-4 (Version None)
Quarter: 2012Q2

REPORT INFORMATION
  Report Type: 
  Country: None (occurrence: None)
  Receive Date: 20120606
  Receipt Date: 20120531
  Transmission Date: 20120825
  Serious: Yes (Other)
  Sender: FDA-Public Use
  Company Number: PHHY2012GB046742

PATIENT
  Age: 26 Year
  Sex: Female

DRUGS (2)
  1. METHOTREXATE [Suspect]
     Indication: RHEUMATOID ARTHRITIS
     Dosage: 200 MG, QW
  2. HYDROXYCHLOROQUINE SULFATE [Suspect]
     Indication: RHEUMATOID ARTHRITIS
     Dosage: 400 MG, QD

REACTIONS (11)
  - HYPOVOLAEMIC SHOCK [None]
  - ABDOMINAL PAIN [None]
  - PORTAL HYPERTENSION [None]
  - HAEMATEMESIS [None]
  - ABDOMINAL TENDERNESS [None]
  - ANAEMIA [None]
  - LIVER DISORDER [None]
  - HEPATIC CIRRHOSIS [None]
  - OESOPHAGEAL VARICES HAEMORRHAGE [None]
  - ASCITES [None]
  - FIBROSIS [None]
